FAERS Safety Report 21552290 (Version 1)
Quarter: 2022Q4

REPORT INFORMATION
  Report Type: Report from Study
  Country: US (occurrence: US)
  Receive Date: 20221104
  Receipt Date: 20221104
  Transmission Date: 20230112
  Serious: No
  Sender: FDA-Public Use
  Company Number: US-ABBVIE-4139982

PATIENT
  Age: 57 Year
  Sex: Female

DRUGS (1)
  1. RINVOQ [Suspect]
     Active Substance: UPADACITINIB
     Indication: Product used for unknown indication
     Dosage: FORM STRENGTH: 15MG
     Route: 048
     Dates: start: 20220929, end: 20220929

REACTIONS (2)
  - Swollen tongue [Unknown]
  - Lip swelling [Unknown]

NARRATIVE: CASE EVENT DATE: 20220929
